FAERS Safety Report 9555820 (Version 1)
Quarter: 2013Q3

REPORT INFORMATION
  Report Type: Spontaneous
  Country: US (occurrence: None)
  Receive Date: 20130726
  Receipt Date: 20130726
  Transmission Date: 20140515
  Serious: Yes (Hospitalization)
  Sender: FDA-Public Use
  Company Number: UTC-024206

PATIENT
  Age: 66 Year
  Sex: Female
  Weight: 70.91 kg

DRUGS (2)
  1. REMODULIN [Suspect]
     Indication: COR PULMONALE CHRONIC
     Dosage: 57.6 UG/KG (0.04 UG/KG, 1 IN 1 MIN)
     Route: 058
     Dates: start: 20120608
  2. LETAIRIS (AMBRISENTAN) (TABLETS) [Concomitant]

REACTIONS (2)
  - Cellulitis [None]
  - Infusion site pain [None]
